FAERS Safety Report 17324054 (Version 1)
Quarter: 2020Q1

REPORT INFORMATION
  Report Type: Spontaneous
  Country: US (occurrence: US)
  Receive Date: 20200109
  Receipt Date: 20200109
  Transmission Date: 20200409
  Serious: No
  Sender: FDA-Public Use
  Company Number: None

PATIENT
  Age: 70 Year
  Sex: Male
  Weight: 101 kg

DRUGS (7)
  1. CLINDAMYCIN. [Concomitant]
     Active Substance: CLINDAMYCIN
  2. SODIUM CHLORIDE. [Concomitant]
     Active Substance: SODIUM CHLORIDE
  3. DEXTROSE 50% [Suspect]
     Active Substance: DEXTROSE
  4. DEXTROSE 10% [Suspect]
     Active Substance: DEXTROSE
     Dates: start: 20191220, end: 20191220
  5. FENTANYL. [Concomitant]
     Active Substance: FENTANYL
  6. VANCOCIN [Suspect]
     Active Substance: VANCOMYCIN HYDROCHLORIDE
     Dates: start: 20191220, end: 20191225
  7. CEFTRIAXONE. [Concomitant]
     Active Substance: CEFTRIAXONE

REACTIONS (3)
  - Extravasation [None]
  - Injection site vesicles [None]
  - Infusion site extravasation [None]

NARRATIVE: CASE EVENT DATE: 20191220
